FAERS Safety Report 11348043 (Version 1)
Quarter: 2015Q3

REPORT INFORMATION
  Report Type: Spontaneous
  Country: US (occurrence: US)
  Receive Date: 20150803
  Receipt Date: 20150803
  Transmission Date: 20151125
  Serious: No
  Sender: FDA-Public Use
  Company Number: US-ELI_LILLY_AND_COMPANY-US201112002575

PATIENT
  Age: 74 Year
  Sex: Female

DRUGS (3)
  1. ZYPREXA [Suspect]
     Active Substance: OLANZAPINE
     Dosage: 5 MG, QD
  2. LITHIUM. [Concomitant]
     Active Substance: LITHIUM
     Dosage: 2.5 DF, QOD
     Dates: start: 1970
  3. LITHIUM. [Concomitant]
     Active Substance: LITHIUM
     Dosage: 2 DF, QOD
     Dates: start: 1970

REACTIONS (3)
  - Musculoskeletal disorder [Unknown]
  - Intentional product misuse [Unknown]
  - Limb discomfort [Unknown]
